FAERS Safety Report 7258434-6 (Version None)
Quarter: 2011Q1

REPORT INFORMATION
  Report Type: 
  Country: None (occurrence: None)
  Receive Date: 20110129
  Receipt Date: 20100830
  Transmission Date: 20110831
  Serious: No
  Sender: FDA-Public Use
  Company Number: US-ABBOTT-10P-163-0668801-00

PATIENT
  Sex: Male
  Weight: 72.64 kg

DRUGS (5)
  1. HUMIRA [Suspect]
     Dosage: SEE FREQUENCY TEXT
     Route: 058
     Dates: start: 20100704
  2. HUMIRA [Suspect]
     Indication: CROHN'S DISEASE
     Route: 058
     Dates: start: 20090101, end: 20090101
  3. UNKNOWN MEDICATION [Concomitant]
     Indication: NEPHROLITHIASIS
  4. METHOTREXATE [Concomitant]
     Indication: PRODUCT USED FOR UNKNOWN INDICATION
  5. MULTI-VITAMIN [Concomitant]
     Indication: PRODUCT USED FOR UNKNOWN INDICATION
     Dosage: DAILY

REACTIONS (4)
  - DRUG INEFFECTIVE [None]
  - PAIN [None]
  - MOBILITY DECREASED [None]
  - MALAISE [None]
